FAERS Safety Report 15450610 (Version 1)
Quarter: 2018Q4

REPORT INFORMATION
  Report Type: Report from Study
  Country: US (occurrence: US)
  Receive Date: 20181001
  Receipt Date: 20181001
  Transmission Date: 20190204
  Serious: Yes (Other)
  Sender: FDA-Public Use
  Company Number: PHEH2018US039428

PATIENT
  Sex: Female

DRUGS (3)
  1. GLEEVEC [Suspect]
     Active Substance: IMATINIB MESYLATE
     Dosage: 400 MG, UNK
     Route: 065
  2. GLEEVEC [Suspect]
     Active Substance: IMATINIB MESYLATE
     Dosage: 200 MG, UNK
     Route: 065
  3. GLEEVEC [Suspect]
     Active Substance: IMATINIB MESYLATE
     Indication: SMALL INTESTINE CARCINOMA
     Dosage: 400 MG, UNK
     Route: 065
     Dates: start: 2011

REACTIONS (11)
  - Second primary malignancy [Unknown]
  - Anxiety [Unknown]
  - Gastrointestinal disorder [Unknown]
  - Swelling [Unknown]
  - Fluid retention [Unknown]
  - Rash [Unknown]
  - Blood pressure increased [Unknown]
  - Tinnitus [Unknown]
  - Hepatic cancer [Unknown]
  - Flatulence [Unknown]
  - Muscle spasms [Unknown]
